FAERS Safety Report 4406703-7 (Version None)
Quarter: 2004Q3

REPORT INFORMATION
  Report Type: 
  Country: None (occurrence: None)
  Receive Date: 20040715
  Receipt Date: 20040702
  Transmission Date: 20050211
  Serious: Yes (Life-Threatening)
  Sender: FDA-Public Use
  Company Number: FABR-10664

PATIENT
  Age: 45 Year
  Sex: Female
  Weight: 50 kg

DRUGS (1)
  1. FABRAZYME [Suspect]
     Indication: FABRY'S DISEASE
     Dosage: 0.7 MG/KG Q2WKS IV
     Route: 042
     Dates: start: 20031022

REACTIONS (2)
  - HAEMODIALYSIS [None]
  - RENAL IMPAIRMENT [None]
